FAERS Safety Report 21391026 (Version 3)
Quarter: 2022Q4

REPORT INFORMATION
  Report Type: Spontaneous
  Country: HU (occurrence: HU)
  Receive Date: 20220929
  Receipt Date: 20221031
  Transmission Date: 20230113
  Serious: Yes (Hospitalization, Other)
  Sender: FDA-Public Use
  Company Number: HU-NOVOPROD-954440

PATIENT
  Age: 74 Year
  Sex: Female
  Weight: 109 kg

DRUGS (2)
  1. SAXENDA [Suspect]
     Active Substance: LIRAGLUTIDE
     Indication: Weight control
     Dosage: 0.6 MG/ML, QD
     Route: 058
     Dates: start: 20220805, end: 20220812
  2. APIXABAN [Concomitant]
     Active Substance: APIXABAN
     Indication: Product used for unknown indication
     Dosage: UNK

REACTIONS (9)
  - Musculoskeletal chest pain [Not Recovered/Not Resolved]
  - Malignant lymphoid neoplasm [Unknown]
  - Non-Hodgkin^s lymphoma [Unknown]
  - Pulmonary oedema [Unknown]
  - Constipation [Not Recovered/Not Resolved]
  - Nausea [Not Recovered/Not Resolved]
  - Flatulence [Not Recovered/Not Resolved]
  - Renal impairment [Unknown]
  - Mental impairment [Unknown]
